FAERS Safety Report 10010947 (Version 12)
Quarter: 2015Q2

REPORT INFORMATION
  Report Type: Report from Study
  Country: US (occurrence: US)
  Receive Date: 20140314
  Receipt Date: 20150611
  Transmission Date: 20150821
  Serious: Yes (Hospitalization, Disabling, Other)
  Sender: FDA-Public Use
  Company Number: US-SA-2014SA018197

PATIENT
  Age: 63 Year
  Sex: Female

DRUGS (2)
  1. AUBAGIO [Suspect]
     Active Substance: TERIFLUNOMIDE
     Indication: MULTIPLE SCLEROSIS
     Route: 048
     Dates: start: 20130709
  2. AMPYRA [Concomitant]
     Active Substance: DALFAMPRIDINE

REACTIONS (18)
  - Knee arthroplasty [Unknown]
  - Fall [Unknown]
  - Sinusitis [Unknown]
  - Bedridden [Unknown]
  - Weight bearing difficulty [Not Recovered/Not Resolved]
  - Nerve injury [Unknown]
  - Flushing [Unknown]
  - Muscular weakness [Unknown]
  - Joint swelling [Unknown]
  - Product packaging issue [Unknown]
  - Joint dislocation [Unknown]
  - Fatigue [Unknown]
  - Ankle fracture [Recovering/Resolving]
  - Joint injury [Unknown]
  - Wheelchair user [Unknown]
  - Impaired driving ability [Unknown]
  - Disability [Unknown]
  - Arthralgia [Unknown]

NARRATIVE: CASE EVENT DATE: 20140207
